FAERS Safety Report 24056226 (Version 1)
Quarter: 2024Q3

REPORT INFORMATION
  Report Type: Spontaneous
  Country: CN (occurrence: CN)
  Receive Date: 20240705
  Receipt Date: 20240705
  Transmission Date: 20241017
  Serious: Yes (Congenital Anomaly, Other)
  Sender: PURDUE
  Company Number: CN-NAPPMUNDI-GBR-2024-0117858

PATIENT
  Age: 60 Year
  Sex: Male
  Weight: 63 kg

DRUGS (4)
  1. OXYCONTIN [Suspect]
     Active Substance: OXYCODONE HYDROCHLORIDE
     Indication: Cancer pain
     Dosage: 20 MILLIGRAM, BID
     Route: 048
     Dates: start: 20240625, end: 20240625
  2. ESTAZOLAM [Suspect]
     Active Substance: ESTAZOLAM
     Indication: Symptomatic treatment
     Dosage: 1 MILLIGRAM, DAILY
     Route: 048
     Dates: start: 20240624, end: 20240626
  3. OXYCODONE AND ACETAMINOPHEN [Concomitant]
     Active Substance: ACETAMINOPHEN\OXYCODONE HYDROCHLORIDE
     Indication: Symptomatic treatment
     Dosage: 330 MILLIGRAM, Q6H
     Route: 048
     Dates: start: 20240411, end: 20240625
  4. MORPHINE SULFATE [Concomitant]
     Active Substance: MORPHINE SULFATE
     Indication: Symptomatic treatment
     Dosage: 3 MILLIGRAM, DAILY
     Route: 058
     Dates: start: 20240625, end: 20240625

REACTIONS (2)
  - Poisoning [Recovering/Resolving]
  - Hypovolaemic shock [Unknown]

NARRATIVE: CASE EVENT DATE: 20240625
